FAERS Safety Report 5820099-5 (Version None)
Quarter: 2008Q3

REPORT INFORMATION
  Report Type: 
  Country: None (occurrence: None)
  Receive Date: 20080721
  Receipt Date: 20080702
  Transmission Date: 20090109
  Serious: Yes (Hospitalization, Other)
  Sender: FDA-Public Use
  Company Number: 2008BI015025

PATIENT
  Sex: Female

DRUGS (9)
  1. TYSABRI [Suspect]
     Indication: MULTIPLE SCLEROSIS
     Dosage: 300 MG QM IV
     Route: 042
     Dates: start: 20070413
  2. BACLOFEN [Concomitant]
  3. DANTROLENE SODIUM [Concomitant]
  4. ZANAFLEX [Concomitant]
  5. GABAPENTIN [Concomitant]
  6. AMBIEN [Concomitant]
  7. PRILOSEC [Concomitant]
  8. XANAX [Concomitant]
  9. OXYBUTININ [Concomitant]

REACTIONS (4)
  - CARDIAC DISORDER [None]
  - NASOPHARYNGITIS [None]
  - PULMONARY EMBOLISM [None]
  - RIGHT VENTRICULAR DYSFUNCTION [None]
